FAERS Safety Report 4628399-1 (Version None)
Quarter: 2005Q2

REPORT INFORMATION
  Report Type: 
  Country: None (occurrence: None)
  Receive Date: 20050401
  Receipt Date: 20050321
  Transmission Date: 20051028
  Serious: Yes (Life-Threatening, Hospitalization)
  Sender: FDA-Public Use
  Company Number: HQWYE003210MAR05

PATIENT
  Age: 41 Year
  Sex: Female

DRUGS (1)
  1. PREMARIN [Suspect]
     Dosage: ORAL
     Route: 048

REACTIONS (11)
  - CONDITION AGGRAVATED [None]
  - HAEMATOCRIT DECREASED [None]
  - HAEMOGLOBIN DECREASED [None]
  - LEIOMYOMA [None]
  - LOWER GASTROINTESTINAL HAEMORRHAGE [None]
  - METASTASES TO GASTROINTESTINAL TRACT [None]
  - METASTASES TO LUNG [None]
  - METASTASES TO PERITONEUM [None]
  - METASTATIC NEOPLASM [None]
  - OESTROGEN RECEPTOR ASSAY POSITIVE [None]
  - PROGESTERONE RECEPTOR ASSAY POSITIVE [None]
